FAERS Safety Report 8841735 (Version 1)
Quarter: 2012Q4

REPORT INFORMATION
  Report Type: Spontaneous
  Country: US (occurrence: None)
  Receive Date: 20121011
  Receipt Date: 20121011
  Transmission Date: 20130627
  Serious: Yes (Other)
  Sender: FDA-Public Use
  Company Number: JPI-P-025505

PATIENT
  Age: 55 Year
  Sex: Female

DRUGS (1)
  1. XYREM [Suspect]
     Route: 048

REACTIONS (2)
  - Occipital neuralgia [None]
  - Cerebral haemorrhage [None]
